FAERS Safety Report 7170811-0 (Version None)
Quarter: 2010Q4

REPORT INFORMATION
  Report Type: 
  Country: None (occurrence: None)
  Receive Date: 20101214
  Receipt Date: 20101214
  Transmission Date: 20110411
  Serious: Yes (Other)
  Sender: FDA-Public Use
  Company Number: None

PATIENT
  Age: 33 Year
  Sex: Female
  Weight: 66.7 kg

DRUGS (1)
  1. SEROQUEL [Suspect]
     Dosage: 200 MG X1 PO
     Route: 048
     Dates: start: 20101112

REACTIONS (3)
  - ASTHENIA [None]
  - DIZZINESS [None]
  - HYPOTENSION [None]
